FAERS Safety Report 4560288-3 (Version None)
Quarter: 2005Q1

REPORT INFORMATION
  Report Type: 
  Country: None (occurrence: None)
  Receive Date: 20050120
  Receipt Date: 20050120
  Transmission Date: 20050727
  Serious: Yes (Other)
  Sender: FDA-Public Use
  Company Number: None

PATIENT
  Age: 73 Year

DRUGS (1)
  1. GATIFLOXACIN [Suspect]
     Indication: URINARY TRACT INFECTION

REACTIONS (4)
  - CONVULSION [None]
  - HYPOGLYCAEMIA [None]
  - MUSCLE TWITCHING [None]
  - TREMOR [None]
